FAERS Safety Report 16116884 (Version 1)
Quarter: 2019Q1

REPORT INFORMATION
  Report Type: Spontaneous
  Country: US (occurrence: US)
  Receive Date: 20190221
  Receipt Date: 20190221
  Transmission Date: 20190418
  Serious: No
  Sender: FDA-Public Use
  Company Number: None

PATIENT
  Age: 38 Year
  Sex: Male

DRUGS (1)
  1. SPRYCEL [Suspect]
     Active Substance: DASATINIB
     Dates: start: 20170815

REACTIONS (7)
  - Hangover [None]
  - Fatigue [None]
  - Product dose omission [None]
  - Headache [None]
  - Dizziness [None]
  - Nausea [None]
  - Insurance issue [None]

NARRATIVE: CASE EVENT DATE: 20190215
